FAERS Safety Report 9518469 (Version 1)
Quarter: 2013Q3

REPORT INFORMATION
  Report Type: Spontaneous
  Country: US (occurrence: None)
  Receive Date: 20130910
  Receipt Date: 20130910
  Transmission Date: 20140515
  Serious: Yes (Hospitalization)
  Sender: FDA-Public Use
  Company Number: 13-08-020

PATIENT
  Age: 48 Year
  Sex: Male
  Weight: 101.61 kg

DRUGS (6)
  1. BENZPHETAMINE HCL [Suspect]
     Indication: OBESITY
  2. CLONIDINE [Concomitant]
  3. TOPIRAMATE [Concomitant]
  4. PANTOPRAZOLE [Concomitant]
  5. AMLODIPINE [Concomitant]
  6. CARVEDILOL [Concomitant]

REACTIONS (1)
  - Cerebrovascular accident [None]
